FAERS Safety Report 22649948 (Version 3)
Quarter: 2024Q4

REPORT INFORMATION
  Report Type: Spontaneous
  Country: DE (occurrence: DE)
  Receive Date: 20230628
  Receipt Date: 20241128
  Transmission Date: 20250114
  Serious: Yes (Other)
  Sender: ROCHE
  Company Number: DE-AMGEN-DEUSP2023103443

PATIENT
  Age: 70 Year
  Sex: Male

DRUGS (8)
  1. BEVACIZUMAB [Suspect]
     Active Substance: BEVACIZUMAB
     Indication: Metastases to lung
     Dosage: UNK
     Route: 065
  2. SOTORASIB [Suspect]
     Active Substance: SOTORASIB
     Indication: Rectal cancer metastatic
     Route: 065
     Dates: start: 202202
  3. SOTORASIB [Suspect]
     Active Substance: SOTORASIB
     Indication: N-ras gene mutation
  4. PANITUMUMAB [Suspect]
     Active Substance: PANITUMUMAB
     Indication: Rectal cancer metastatic
     Dosage: 6 MILLIGRAM, Q2WK
     Route: 065
     Dates: start: 202202
  5. PANITUMUMAB [Suspect]
     Active Substance: PANITUMUMAB
     Indication: N-ras gene mutation
  6. FLUOROURACIL [Concomitant]
     Active Substance: FLUOROURACIL
  7. OXALIPLATIN [Concomitant]
     Active Substance: OXALIPLATIN
  8. LEUCOVORIN [Concomitant]
     Active Substance: LEUCOVORIN\LEUCOVORIN CALCIUM
     Indication: Metastases to lung

REACTIONS (3)
  - Ascites [Unknown]
  - Dermatitis acneiform [Unknown]
  - Rectal cancer metastatic [Unknown]
